FAERS Safety Report 20604753 (Version 6)
Quarter: 2022Q3

REPORT INFORMATION
  Report Type: Other
  Country: US (occurrence: None)
  Receive Date: 20220317
  Receipt Date: 20220803
  Transmission Date: 20221026
  Serious: No
  Sender: FDA-Public Use
  Company Number: US-ROCHE-3047647

PATIENT
  Age: 43 Year
  Sex: Female

DRUGS (29)
  1. OCRELIZUMAB [Suspect]
     Active Substance: OCRELIZUMAB
     Indication: Multiple sclerosis
     Dosage: 12/OCT/2021, SECOND INFUSION
     Route: 042
     Dates: start: 20210927
  2. BACLOFEN [Concomitant]
     Active Substance: BACLOFEN
     Dates: start: 20210126
  3. FLOVENT [Concomitant]
     Active Substance: FLUTICASONE PROPIONATE
     Dates: start: 20210721
  4. IBUPROFEN [Concomitant]
     Active Substance: IBUPROFEN
     Dates: start: 20210812
  5. LORAZEPAM [Concomitant]
     Active Substance: LORAZEPAM
     Dates: start: 20210829
  6. MODAFINIL [Concomitant]
     Active Substance: MODAFINIL
     Dates: start: 20210923
  7. COVID-19 VACCINE NOS [Concomitant]
     Active Substance: COVID-19 VACCINE NOS
     Dates: start: 20210308, end: 20210308
  8. COVID-19 VACCINE NOS [Concomitant]
     Active Substance: COVID-19 VACCINE NOS
     Dates: start: 20210331, end: 20210331
  9. COVID-19 VACCINE NOS [Concomitant]
     Active Substance: COVID-19 VACCINE NOS
     Dates: start: 20210902, end: 20210902
  10. AMITRIPTYLINE [Concomitant]
     Active Substance: AMITRIPTYLINE
     Dates: start: 2012
  11. BETAMETHASONE DIPROPIONATE [Concomitant]
     Active Substance: BETAMETHASONE DIPROPIONATE
     Dates: start: 2020
  12. VITAMIN D3 [Concomitant]
     Active Substance: CHOLECALCIFEROL
     Dates: start: 2016
  13. LISINOPRIL [Concomitant]
     Active Substance: LISINOPRIL
     Dates: start: 2001, end: 2022
  14. TOPIRAMATE [Concomitant]
     Active Substance: TOPIRAMATE
     Dates: start: 2001
  15. OMEGA 3 [Concomitant]
     Active Substance: CAPSAICIN
     Dates: start: 2021
  16. ONABOTULINUMTOXINA [Concomitant]
     Active Substance: ONABOTULINUMTOXINA
     Dates: start: 2021
  17. AJOVY [Concomitant]
     Active Substance: FREMANEZUMAB-VFRM
     Dates: start: 2021
  18. ACYCLOVIR [Concomitant]
     Active Substance: ACYCLOVIR
     Dates: start: 2018
  19. SUMATRIPTAN [Concomitant]
     Active Substance: SUMATRIPTAN
     Dates: start: 2004
  20. SINGULAIR [Concomitant]
     Active Substance: MONTELUKAST SODIUM
     Dates: start: 2022
  21. NASONEX [Concomitant]
     Active Substance: MOMETASONE FUROATE
     Dates: start: 2015
  22. ALBUTEROL [Concomitant]
     Active Substance: ALBUTEROL
     Dates: start: 2020
  23. LEXAPRO [Concomitant]
     Active Substance: ESCITALOPRAM OXALATE
     Dates: start: 2002
  24. ZOFRAN [Concomitant]
     Active Substance: ONDANSETRON HYDROCHLORIDE
     Dates: start: 2022
  25. CLONAZEPAM [Concomitant]
     Active Substance: CLONAZEPAM
     Dates: start: 20220226, end: 20220302
  26. PHENERGAN [Concomitant]
     Active Substance: PROMETHAZINE HYDROCHLORIDE
     Dates: start: 2015
  27. PEPCID [Concomitant]
     Active Substance: FAMOTIDINE
     Dates: start: 2022
  28. DIFLUCAN [Concomitant]
     Active Substance: FLUCONAZOLE
     Dates: start: 2022
  29. CHOLESTYRAMINE [Concomitant]
     Active Substance: CHOLESTYRAMINE
     Dates: start: 20220215, end: 20220220

REACTIONS (1)
  - COVID-19 [Recovered/Resolved]

NARRATIVE: CASE EVENT DATE: 20220126
